FAERS Safety Report 5188104-X (Version None)
Quarter: 2006Q4

REPORT INFORMATION
  Report Type: 
  Country: None (occurrence: None)
  Receive Date: 20061214
  Receipt Date: 20061214
  Transmission Date: 20070319
  Serious: Yes (Life-Threatening, Hospitalization)
  Sender: FDA-Public Use
  Company Number: None

PATIENT
  Age: 80 Year
  Sex: Female

DRUGS (12)
  1. EPIPEN [Suspect]
     Indication: ARTHROPOD STING
     Dosage: SQ ONCE
     Route: 058
     Dates: start: 20060930
  2. ASPIRIN [Concomitant]
  3. ATENOLOL [Concomitant]
  4. CELEBREX [Concomitant]
  5. DITROPAN XR [Concomitant]
  6. MAVIK [Concomitant]
  7. NITROGLYCERIN [Concomitant]
  8. PAXIL [Concomitant]
  9. PLAVIX [Concomitant]
  10. PROTONIX [Concomitant]
  11. SEROQUEL [Concomitant]
  12. SYNTHROID [Concomitant]

REACTIONS (2)
  - ACUTE MYOCARDIAL INFARCTION [None]
  - HYPOAESTHESIA [None]
